FAERS Safety Report 20637846 (Version 1)
Quarter: 2022Q1

REPORT INFORMATION
  Report Type: Spontaneous
  Country: FR (occurrence: FR)
  Receive Date: 20220325
  Receipt Date: 20220325
  Transmission Date: 20220424
  Serious: Yes (Congenital Anomaly)
  Sender: FDA-Public Use
  Company Number: None

PATIENT

DRUGS (1)
  1. ESCITALOPRAM OXALATE [Suspect]
     Active Substance: ESCITALOPRAM OXALATE
     Indication: Foetal exposure during pregnancy
     Dosage: 20 MG, QD
     Route: 064
     Dates: start: 20210710

REACTIONS (2)
  - Pregnancy [Unknown]
  - Talipes [Not Recovered/Not Resolved]

NARRATIVE: CASE EVENT DATE: 20211029
